FAERS Safety Report 10565652 (Version 1)
Quarter: 2014Q4

REPORT INFORMATION
  Report Type: Spontaneous
  Country: GB (occurrence: GB)
  Receive Date: 20141105
  Receipt Date: 20141105
  Transmission Date: 20150529
  Serious: Yes (Hospitalization)
  Sender: FDA-Public Use
  Company Number: GB-TEVA-518359ISR

PATIENT
  Age: 56 Year
  Sex: Female

DRUGS (8)
  1. MIRTAZAPINE. [Suspect]
     Active Substance: MIRTAZAPINE
     Indication: DEPRESSED MOOD
     Route: 048
     Dates: start: 20140617
  2. QUETIAPINE [Concomitant]
     Active Substance: QUETIAPINE
  3. SOLPADEINE [Concomitant]
     Active Substance: ACETAMINOPHEN\CODEINE PHOSPHATE
  4. DIAZEPAM. [Concomitant]
     Active Substance: DIAZEPAM
  5. LORAZEPAM. [Concomitant]
     Active Substance: LORAZEPAM
  6. OLANZAPINE. [Concomitant]
     Active Substance: OLANZAPINE
  7. MIRTAZAPINE. [Suspect]
     Active Substance: MIRTAZAPINE
     Indication: DEPRESSED MOOD
     Route: 048
     Dates: end: 20140822
  8. NICOTINE. [Concomitant]
     Active Substance: NICOTINE

REACTIONS (1)
  - Psychotic disorder [Recovered/Resolved]

NARRATIVE: CASE EVENT DATE: 20140727
